FAERS Safety Report 23053394 (Version 1)
Quarter: 2023Q4

REPORT INFORMATION
  Report Type: Spontaneous
  Country: IT (occurrence: IT)
  Receive Date: 20231011
  Receipt Date: 20231011
  Transmission Date: 20240109
  Serious: Yes (Other)
  Sender: FDA-Public Use
  Company Number: IT-drreddys-SPO/ITL/23/0178964

PATIENT
  Age: 48 Year
  Sex: Male

DRUGS (3)
  1. IMATINIB [Suspect]
     Active Substance: IMATINIB
     Indication: Chronic myeloid leukaemia
     Dosage: 400 MG, QD
  2. IMATINIB [Suspect]
     Active Substance: IMATINIB
     Dosage: UNK
     Dates: start: 1999
  3. ASPIRIN [Concomitant]
     Active Substance: ASPIRIN
     Indication: Antiplatelet therapy
     Dosage: 100 MG, QD

REACTIONS (1)
  - Polycythaemia vera [Unknown]
